FAERS Safety Report 6452056-2 (Version None)
Quarter: 2009Q4

REPORT INFORMATION
  Report Type: 
  Country: None (occurrence: None)
  Receive Date: 20091123
  Receipt Date: 20091118
  Transmission Date: 20100525
  Serious: Yes (Hospitalization)
  Sender: FDA-Public Use
  Company Number: A0817711A

PATIENT
  Sex: Female

DRUGS (3)
  1. ALLI [Suspect]
     Route: 048
     Dates: start: 20090401, end: 20090605
  2. TRAZODONE HCL [Concomitant]
     Indication: SLEEP DISORDER
     Route: 048
  3. XANAX [Concomitant]
     Indication: ANXIETY
     Route: 048

REACTIONS (8)
  - CONVULSION [None]
  - CYSTITIS [None]
  - DYSKINESIA [None]
  - ESCHERICHIA SEPSIS [None]
  - FAECAL INCONTINENCE [None]
  - HEADACHE [None]
  - KIDNEY INFECTION [None]
  - PYREXIA [None]
